FAERS Safety Report 9831617 (Version 1)
Quarter: 2014Q1

REPORT INFORMATION
  Report Type: Spontaneous
  Country: US (occurrence: US)
  Receive Date: 20140121
  Receipt Date: 20140121
  Transmission Date: 20141002
  Serious: No
  Sender: FDA-Public Use
  Company Number: US-PFIZER INC-2014015927

PATIENT
  Sex: Female

DRUGS (4)
  1. CHANTIX [Suspect]
     Indication: SMOKING CESSATION THERAPY
     Dosage: UNK
     Dates: start: 2007, end: 2007
  2. CHANTIX [Suspect]
     Dosage: UNK
     Dates: start: 201401, end: 201401
  3. CHANTIX [Suspect]
     Dosage: 1 MG, 2X/DAY
     Dates: start: 201401, end: 201401
  4. CHANTIX [Suspect]
     Dosage: 1 MG, 1X/DAY
     Dates: start: 201401

REACTIONS (4)
  - Depressed mood [Unknown]
  - Drug effect incomplete [Unknown]
  - Insomnia [Unknown]
  - Malaise [Unknown]
